FAERS Safety Report 24762988 (Version 1)
Quarter: 2024Q4

REPORT INFORMATION
  Report Type: Spontaneous
  Country: JP (occurrence: JP)
  Receive Date: 20241222
  Receipt Date: 20241222
  Transmission Date: 20250115
  Serious: Yes (Other)
  Sender: ARDELYX
  Company Number: JP-ARDELYX-2024ARDX009065

PATIENT
  Age: 50 Year
  Sex: Male

DRUGS (1)
  1. TENAPANOR HYDROCHLORIDE [Suspect]
     Active Substance: TENAPANOR HYDROCHLORIDE
     Indication: Hyperphosphataemia
     Dosage: 5 MILLIGRAM, QD
     Route: 048
     Dates: start: 20241209

REACTIONS (2)
  - Myocardial infarction [Unknown]
  - Off label use [Unknown]

NARRATIVE: CASE EVENT DATE: 20241209
